FAERS Safety Report 22159039 (Version 1)
Quarter: 2023Q1

REPORT INFORMATION
  Report Type: Spontaneous
  Country: US (occurrence: None)
  Receive Date: 20230331
  Receipt Date: 20230331
  Transmission Date: 20230417
  Serious: No
  Sender: FDA-Public Use
  Company Number: US-Hikma Pharmaceuticals USA Inc.-US-H14001-22-02313

PATIENT
  Sex: Female

DRUGS (1)
  1. BUTORPHANOL TARTRATE [Suspect]
     Active Substance: BUTORPHANOL TARTRATE
     Indication: Migraine
     Dosage: ONE SPRAY IN NOSTRIL
     Route: 045

REACTIONS (2)
  - Dysgeusia [Unknown]
  - Drug ineffective [Unknown]
